FAERS Safety Report 8484164-9 (Version None)
Quarter: 2012Q3

REPORT INFORMATION
  Report Type: 
  Country: None (occurrence: None)
  Receive Date: 20120703
  Receipt Date: 20120625
  Transmission Date: 20120928
  Serious: Yes (Hospitalization)
  Sender: FDA-Public Use
  Company Number: US-BAYER-2012-060998

PATIENT
  Age: 48 Year
  Sex: Female
  Weight: 79.365 kg

DRUGS (7)
  1. LISINOPRIL [Concomitant]
  2. METOPROLOL [Concomitant]
  3. ACETAMINOPHEN [Concomitant]
     Indication: PAIN
     Dosage: UNK
     Route: 048
     Dates: start: 20100601
  4. ALDACTONE [Concomitant]
  5. YASMIN [Suspect]
     Dosage: UNK
     Dates: start: 20030512, end: 20060519
  6. YAZ [Suspect]
     Indication: CONTRACEPTION
     Dosage: UNK
     Dates: start: 20060519, end: 20100617
  7. IBUPROFEN [Concomitant]
     Indication: PAIN
     Dosage: UNK
     Route: 048
     Dates: start: 20100601

REACTIONS (3)
  - PULMONARY EMBOLISM [None]
  - DYSPNOEA [None]
  - DEEP VEIN THROMBOSIS [None]
